FAERS Safety Report 5289367-2 (Version None)
Quarter: 2007Q2

REPORT INFORMATION
  Report Type: 
  Country: None (occurrence: None)
  Receive Date: 20070404
  Receipt Date: 20070404
  Transmission Date: 20071010
  Serious: Yes (Other)
  Sender: FDA-Public Use
  Company Number: None

PATIENT
  Age: 74 Year
  Sex: Male
  Weight: 70.7611 kg

DRUGS (15)
  1. TERAZOSIN HCL [Suspect]
     Indication: HYPERTENSION
     Dosage: 2MG BID PO
     Route: 048
     Dates: start: 20070301, end: 20070302
  2. MEPERIDINE HCL [Suspect]
     Indication: PROCEDURAL PAIN
     Dosage: 12.5 MG Q3H PRN PAIN IV
     Route: 042
     Dates: start: 20070301, end: 20070306
  3. CARISOPRODOL [Concomitant]
  4. ACETAMINOPHEN AND HYDROCODONE BITARTRATE [Concomitant]
  5. ONDANSETRON [Concomitant]
  6. GENTAMICIN [Concomitant]
  7. MYLANTA [Concomitant]
  8. TEMAZEPAM [Concomitant]
  9. CEFAXDIN [Concomitant]
  10. AMBIEN [Concomitant]
  11. DITROPAN [Concomitant]
  12. GABAPENTIN [Concomitant]
  13. ZYTORIN [Concomitant]
  14. VYTORIN [Concomitant]
  15. MORPHINE [Concomitant]

REACTIONS (1)
  - HYPOTENSION [None]
